FAERS Safety Report 11226095 (Version 1)
Quarter: 2015Q2

REPORT INFORMATION
  Report Type: Spontaneous
  Country: US (occurrence: US)
  Receive Date: 20150629
  Receipt Date: 20150629
  Transmission Date: 20150821
  Serious: No
  Sender: FDA-Public Use
  Company Number: US-TAKEDA-2015TUS008273

PATIENT
  Sex: Female
  Weight: 86.17 kg

DRUGS (3)
  1. CONTRAVE [Suspect]
     Active Substance: BUPROPION HYDROCHLORIDE\NALTREXONE HYDROCHLORIDE
     Indication: DEPRESSION
     Dosage: 8/90 MG, 2 BID
     Route: 048
     Dates: start: 2015, end: 2015
  2. CONTRAVE [Suspect]
     Active Substance: BUPROPION HYDROCHLORIDE\NALTREXONE HYDROCHLORIDE
     Dosage: 8/90 MG , QD
     Route: 048
     Dates: start: 20150618
  3. CONTRAVE [Suspect]
     Active Substance: BUPROPION HYDROCHLORIDE\NALTREXONE HYDROCHLORIDE
     Indication: OBESITY
     Dosage: 8/90 MG , QD
     Route: 048
     Dates: start: 201503, end: 2015

REACTIONS (5)
  - Nausea [Unknown]
  - Dizziness [Unknown]
  - Nervousness [Recovered/Resolved]
  - Product use issue [Not Recovered/Not Resolved]
  - Panic disorder [Recovered/Resolved]

NARRATIVE: CASE EVENT DATE: 2015
